FAERS Safety Report 5125225-1 (Version None)
Quarter: 2006Q4

REPORT INFORMATION
  Report Type: 
  Country: None (occurrence: None)
  Receive Date: 20061006
  Receipt Date: 20060927
  Transmission Date: 20070319
  Serious: Yes (Death, Hospitalization)
  Sender: FDA-Public Use
  Company Number: 2006-02497

PATIENT
  Age: 60 Year
  Sex: Female
  Weight: 78 kg

DRUGS (6)
  1. VELCADE [Suspect]
     Indication: MULTIPLE MYELOMA
     Dosage: 2.40 MG, IV BOLUS
     Route: 040
     Dates: start: 20060601, end: 20060611
  2. DEXAMETHASONE TAB [Concomitant]
  3. DICLOFENAC SODIUM [Concomitant]
  4. OMEPRAZOLE [Concomitant]
  5. BONEFOS (CLODRONATE DISODIUM) [Concomitant]
  6. NITROMINT (GLYCERYL TRINITRATE) TABLET [Concomitant]

REACTIONS (5)
  - ACUTE ABDOMEN [None]
  - LARGE INTESTINE PERFORATION [None]
  - MULTI-ORGAN FAILURE [None]
  - PERITONITIS [None]
  - SEPTIC SHOCK [None]
